FAERS Safety Report 17469175 (Version 1)
Quarter: 2020Q1

REPORT INFORMATION
  Report Type: Spontaneous
  Country: US (occurrence: US)
  Receive Date: 20200227
  Receipt Date: 20200227
  Transmission Date: 20200409
  Serious: No
  Sender: FDA-Public Use
  Company Number: US-SA-2020SA045560

PATIENT
  Age: 34 Year
  Sex: Male

DRUGS (1)
  1. DUPIXENT [Suspect]
     Active Substance: DUPILUMAB
     Indication: SINUS DISORDER
     Dosage: UNK UNK, QM

REACTIONS (7)
  - Disease recurrence [Unknown]
  - Oral herpes [Unknown]
  - Off label use [Unknown]
  - Product use in unapproved indication [Unknown]
  - Product dose omission [Unknown]
  - Rash [Unknown]
  - Memory impairment [Unknown]
